FAERS Safety Report 7382974-2 (Version None)
Quarter: 2011Q1

REPORT INFORMATION
  Report Type: 
  Country: None (occurrence: None)
  Receive Date: 20110330
  Receipt Date: 20110317
  Transmission Date: 20110831
  Serious: Yes (Hospitalization, Other)
  Sender: FDA-Public Use
  Company Number: US-RANBAXY-2011US-43069

PATIENT

DRUGS (3)
  1. ISOTRETINOIN [Suspect]
     Indication: ACNE
     Dosage: UNK, UNK
     Route: 048
  2. AMNESTEEM [Suspect]
     Indication: ACNE
     Dosage: UNK
     Route: 048
  3. ACCUTANE [Suspect]
     Indication: ACNE
     Dosage: UNK
     Route: 048

REACTIONS (7)
  - WEIGHT DECREASED [None]
  - CROHN'S DISEASE [None]
  - ABDOMINAL PAIN [None]
  - GASTROINTESTINAL INJURY [None]
  - NAUSEA [None]
  - EMOTIONAL DISTRESS [None]
  - INFLAMMATORY BOWEL DISEASE [None]
